FAERS Safety Report 10070300 (Version 1)
Quarter: 2014Q2

REPORT INFORMATION
  Report Type: Spontaneous
  Country: US (occurrence: None)
  Receive Date: 20140409
  Receipt Date: 20140409
  Transmission Date: 20141212
  Serious: Yes (Hospitalization)
  Sender: FDA-Public Use
  Company Number: None

PATIENT
  Age: 79 Year
  Sex: Male
  Weight: 113.6 kg

DRUGS (4)
  1. ASPIRIN [Suspect]
     Indication: CEREBROVASCULAR ACCIDENT
     Dosage: 81 MG, EVERY DAY, PO
     Route: 048
     Dates: start: 20111104
  2. ASPIRIN [Suspect]
     Indication: PROPHYLAXIS
     Dosage: 81 MG, EVERY DAY, PO
     Route: 048
     Dates: start: 20111104
  3. CLOPIDOGREL [Suspect]
     Indication: CEREBROVASCULAR ACCIDENT
     Dosage: 75 MG, EVERY DAY, PO
     Route: 048
     Dates: start: 20060206
  4. CLOPIDOGREL [Suspect]
     Indication: PROPHYLAXIS
     Dosage: 75 MG, EVERY DAY, PO
     Route: 048
     Dates: start: 20060206

REACTIONS (4)
  - Rectal haemorrhage [None]
  - Presyncope [None]
  - Upper gastrointestinal haemorrhage [None]
  - Lower gastrointestinal haemorrhage [None]
